FAERS Safety Report 10985387 (Version 1)
Quarter: 2015Q2

REPORT INFORMATION
  Report Type: Spontaneous
  Country: US (occurrence: US)
  Receive Date: 20150404
  Receipt Date: 20150404
  Transmission Date: 20150821
  Serious: No
  Sender: FDA-Public Use
  Company Number: US-SA-2014SA053744

PATIENT
  Age: 62 Year
  Sex: Female

DRUGS (2)
  1. ALLEGRA-D [Suspect]
     Active Substance: FEXOFENADINE\PSEUDOEPHEDRINE
     Indication: HYPERSENSITIVITY
     Dosage: TOOK AT NIGHT
     Route: 048
     Dates: start: 20140417
  2. ALLEGRA-D [Suspect]
     Active Substance: FEXOFENADINE\PSEUDOEPHEDRINE
     Indication: NASAL CONGESTION
     Dosage: TOOK AT NIGHT
     Route: 048
     Dates: start: 20140417

REACTIONS (4)
  - Insomnia [Unknown]
  - Nasal dryness [Unknown]
  - Cold sweat [Unknown]
  - Dry throat [Unknown]
